FAERS Safety Report 5367457-3 (Version None)
Quarter: 2007Q2

REPORT INFORMATION
  Report Type: 
  Country: None (occurrence: None)
  Receive Date: 20070622
  Receipt Date: 20060828
  Transmission Date: 20071010
  Serious: No
  Sender: FDA-Public Use
  Company Number: US-ASTRAZENECA-2006UW16951

PATIENT
  Sex: Female

DRUGS (2)
  1. PULMICORT TH [Suspect]
     Dosage: 1 PUFFS A DAY
     Route: 055
     Dates: start: 20030101
  2. PULMICORT TH [Suspect]
     Dosage: 1 PUFF A DAY
     Route: 055

REACTIONS (3)
  - REFLUX GASTRITIS [None]
  - SINUSITIS [None]
  - STOMACH DISCOMFORT [None]
